FAERS Safety Report 25013974 (Version 1)
Quarter: 2025Q1

REPORT INFORMATION
  Report Type: Spontaneous
  Country: US (occurrence: None)
  Receive Date: 20250226
  Receipt Date: 20250226
  Transmission Date: 20250409
  Serious: No
  Sender: FDA-CTU
  Company Number: None

PATIENT
  Age: 64 Year
  Sex: Female
  Weight: 112.5 kg

DRUGS (1)
  1. NYSTATIN [Suspect]
     Active Substance: NYSTATIN
     Indication: Oral candidiasis
     Dosage: OTHER STRENGTH : UNITS PER MILILETE;?OTHER QUANTITY : 5 ML?FREQUENCY : 4 TIMES A DAY?
     Route: 048

REACTIONS (4)
  - Cough [None]
  - Dysphonia [None]
  - Oropharyngeal pain [None]
  - Oral pain [None]

NARRATIVE: CASE EVENT DATE: 20250209
